FAERS Safety Report 6108822-6 (Version None)
Quarter: 2009Q1

REPORT INFORMATION
  Report Type: 
  Country: None (occurrence: None)
  Receive Date: 20090310
  Receipt Date: 20090304
  Transmission Date: 20090719
  Serious: Yes (Hospitalization)
  Sender: FDA-Public Use
  Company Number: FR-BRISTOL-MYERS SQUIBB COMPANY-14487227

PATIENT
  Age: 64 Year
  Sex: Female

DRUGS (8)
  1. QUESTRAN [Suspect]
     Indication: HYPERCHOLESTEROLAEMIA
     Route: 048
     Dates: start: 20070701, end: 20080501
  2. CRESTOR [Suspect]
     Indication: HYPERCHOLESTEROLAEMIA
     Route: 048
     Dates: start: 20070101, end: 20070601
  3. FRACTAL [Suspect]
     Indication: HYPERCHOLESTEROLAEMIA
     Route: 048
     Dates: start: 20020101, end: 20030101
  4. LESCOL [Suspect]
     Indication: HYPERCHOLESTEROLAEMIA
     Route: 048
     Dates: start: 20031201, end: 20041101
  5. ZOCOR [Suspect]
     Indication: HYPERCHOLESTEROLAEMIA
     Dosage: 1DF=1 UNIT (UNITS NOT SPECIFIED)
     Route: 048
     Dates: start: 20041201, end: 20051001
  6. EZETROL [Suspect]
     Indication: HYPERCHOLESTEROLAEMIA
     Dosage: FORM: TABLET
     Route: 048
     Dates: start: 20051101, end: 20060301
  7. LIPANTHYL [Suspect]
     Indication: HYPERCHOLESTEROLAEMIA
     Route: 048
     Dates: start: 20060301, end: 20061201
  8. BONIVA [Concomitant]
     Indication: OSTEOPOROSIS

REACTIONS (4)
  - ARTHRALGIA [None]
  - HEADACHE [None]
  - MYALGIA [None]
  - ORGANISING PNEUMONIA [None]
